FAERS Safety Report 24128137 (Version 2)
Quarter: 2024Q3

REPORT INFORMATION
  Report Type: Spontaneous
  Country: US (occurrence: US)
  Receive Date: 20240723
  Receipt Date: 20240930
  Transmission Date: 20241017
  Serious: No
  Sender: JOHNSON AND JOHNSON
  Company Number: US-JNJFOC-20240731945

PATIENT
  Age: 65 Year
  Sex: Female

DRUGS (2)
  1. WOMENS ROGAINE UNSCENTED [Suspect]
     Active Substance: MINOXIDIL
     Indication: Alopecia
     Dosage: 1/2 CAPFUL ON FIRST DAY BUT GOT FOLLICULITIES WITHIN 7 HOURS. WHEN FOLLICULITIS RESOLVED (4 DAYS LAT
     Route: 061
     Dates: start: 20240627, end: 2024
  2. WOMENS ROGAINE UNSCENTED [Suspect]
     Active Substance: MINOXIDIL
     Dosage: 1/2 CAPFUL ON FIRST DAY BUT GOT FOLLICULITIES WITHIN 7 HOURS. WHEN FOLLICULITIS RESOLVED (4 DAYS LAT
     Route: 061
     Dates: start: 202407, end: 202407

REACTIONS (2)
  - Application site folliculitis [Recovered/Resolved]
  - Product use in unapproved indication [Unknown]

NARRATIVE: CASE EVENT DATE: 20240627
